FAERS Safety Report 11840000 (Version 1)
Quarter: 2015Q4

REPORT INFORMATION
  Report Type: Spontaneous
  Country: US (occurrence: None)
  Receive Date: 20151215
  Receipt Date: 20151215
  Transmission Date: 20160305
  Serious: Yes (Other)
  Sender: FDA-Public Use
  Company Number: None

PATIENT
  Age: 67 Year
  Sex: Female

DRUGS (9)
  1. AMOXICILLIN. [Concomitant]
     Active Substance: AMOXICILLIN
  2. METOCLOPRAMIDE. [Concomitant]
     Active Substance: METOCLOPRAMIDE
  3. MAKENA [Suspect]
     Active Substance: HYDROXYPROGESTERONE CAPROATE
     Route: 030
     Dates: start: 20151023
  4. MUPIROCIN. [Concomitant]
     Active Substance: MUPIROCIN
  5. CEPHALEXIN. [Concomitant]
     Active Substance: CEPHALEXIN
  6. ONDANSETRON [Concomitant]
     Active Substance: ONDANSETRON
  7. SUMATRIPTAN. [Concomitant]
     Active Substance: SUMATRIPTAN
  8. FERRALET [Concomitant]
  9. FLUCONAZOLE. [Concomitant]
     Active Substance: FLUCONAZOLE

REACTIONS (1)
  - No adverse event [None]

NARRATIVE: CASE EVENT DATE: 201512
